FAERS Safety Report 5584376-8 (Version None)
Quarter: 2008Q1

REPORT INFORMATION
  Report Type: 
  Country: None (occurrence: None)
  Receive Date: 20080108
  Receipt Date: 20080103
  Transmission Date: 20080703
  Serious: Yes (Life-Threatening)
  Sender: FDA-Public Use
  Company Number: JP-BRACCO-000026

PATIENT
  Age: 66 Year
  Sex: Male

DRUGS (5)
  1. IOPAMIDOL [Suspect]
     Indication: COMPUTERISED TOMOGRAM
     Route: 042
     Dates: start: 20071129, end: 20071129
  2. ADALAT [Concomitant]
     Indication: HYPERTENSION
     Route: 048
  3. MAGNESIUM OXIDE [Concomitant]
     Route: 048
  4. ZANTAC [Concomitant]
     Route: 048
  5. WARFARIN POTASSIUM [Concomitant]

REACTIONS (3)
  - HEADACHE [None]
  - INTRACRANIAL VENOUS SINUS THROMBOSIS [None]
  - VOMITING [None]
